FAERS Safety Report 14592704 (Version 2)
Quarter: 2024Q3

REPORT INFORMATION
  Report Type: Spontaneous
  Country: CH (occurrence: CH)
  Receive Date: 20180302
  Receipt Date: 20240729
  Transmission Date: 20241016
  Serious: Yes (Other)
  Sender: MERCK
  Company Number: None

PATIENT
  Age: 43 Year
  Sex: Female
  Weight: 56 kg

DRUGS (26)
  1. EMEND [Interacting]
     Active Substance: APREPITANT
     Indication: Prophylaxis of nausea and vomiting
     Dosage: 125 MG, D1
     Route: 048
     Dates: start: 20171212, end: 20180201
  2. EMEND [Interacting]
     Active Substance: APREPITANT
     Dosage: 80 MG DAYS 2-3
     Route: 048
     Dates: start: 20180202, end: 20180203
  3. IFOSFAMIDE [Interacting]
     Active Substance: IFOSFAMIDE
     Indication: Chemotherapy
     Dosage: 3400 MILLIGRAM, CYCLICAL
     Route: 042
     Dates: start: 20171212
  4. IFOSFAMIDE [Interacting]
     Active Substance: IFOSFAMIDE
     Dosage: 3400 MILLIGRAM, CYCLICAL
     Dates: start: 20180104
  5. IFOSFAMIDE [Interacting]
     Active Substance: IFOSFAMIDE
     Dosage: 3400 MILLIGRAM OVER 24 H DAYS 1-5
     Route: 042
     Dates: start: 20180201, end: 20180205
  6. DOXORUBICIN [Suspect]
     Active Substance: DOXORUBICIN
     Indication: Chemotherapy
     Dosage: 51 MG DAYS 1-3
     Route: 041
     Dates: start: 20171212, end: 20180203
  7. MESNA [Suspect]
     Active Substance: MESNA
     Dosage: 3400 MILLIGRAM OVER 24 H DAYS 1-5
     Route: 042
     Dates: start: 20171212, end: 20180206
  8. KYTRIL [Suspect]
     Active Substance: GRANISETRON HYDROCHLORIDE
     Dosage: 2 MG, QD
     Route: 048
     Dates: start: 20180201, end: 20180205
  9. DEXAMETHASONE [Suspect]
     Active Substance: DEXAMETHASONE
     Dosage: 8 MG, QD
  10. KEPPRA [Suspect]
     Active Substance: LEVETIRACETAM
     Dosage: 15 ML, BID
  11. MORPHINE SULFATE [Suspect]
     Active Substance: MORPHINE SULFATE
     Dosage: 100 MG, BID
  12. PANTOZOL [Suspect]
     Active Substance: PANTOPRAZOLE SODIUM
     Dosage: 20 MG, QD
  13. PREGABALIN [Suspect]
     Active Substance: PREGABALIN
     Dosage: 200 MG, BID
  14. TIZANIDINE [Suspect]
     Active Substance: TIZANIDINE
     Dosage: 2 MG, BID
  15. TRAZODONE HYDROCHLORIDE [Suspect]
     Active Substance: TRAZODONE HYDROCHLORIDE
     Dosage: 75 MG, QD
  16. ZOLPIDEM [Suspect]
     Active Substance: ZOLPIDEM TARTRATE
     Dosage: 10 MG, QD
  17. FOLIC ACID [Suspect]
     Active Substance: FOLIC ACID
     Dosage: 5 MG, QD
  18. POTASSIUM CHLORIDE [Suspect]
     Active Substance: POTASSIUM CHLORIDE
     Dosage: 20 MMOL, TID
  19. CHOLECALCIFEROL [Suspect]
     Active Substance: CHOLECALCIFEROL
     Dosage: 1600 IU, QD
  20. CALCIUM\CHOLECALCIFEROL [Suspect]
     Active Substance: CALCIUM\CHOLECALCIFEROL
     Dosage: 500 MG, QD
  21. FRAGMIN [Suspect]
     Active Substance: DALTEPARIN SODIUM
     Dosage: 5000 INTERNATIONAL UNIT, QD
  22. AMPHOTERICIN B [Suspect]
     Active Substance: AMPHOTERICIN B
     Dosage: 10 MG, QID
     Route: 002
  23. RHUBARB\SALICYLIC ACID [Suspect]
     Active Substance: RHUBARB\SALICYLIC ACID
     Dosage: 1 ML, QID
     Route: 002
  24. MATRICARIA CHAMOMILLA ROOT [Suspect]
     Active Substance: MATRICARIA CHAMOMILLA ROOT
     Dosage: HOMEOPATHIC SOLUTION: KAMILLOSAN (LIQUID) STELLER D 6 3X/DAY MOUTH WASH
     Route: 048
  25. RIBOFLAVIN [Suspect]
     Active Substance: RIBOFLAVIN
  26. DEXTROSE [Suspect]
     Active Substance: DEXTROSE\DEXTROSE MONOHYDRATE

REACTIONS (3)
  - Toxic encephalopathy [Recovered/Resolved]
  - Drug interaction [Recovered/Resolved]
  - Off label use [Unknown]

NARRATIVE: CASE EVENT DATE: 20171212
